FAERS Safety Report 24054659 (Version 1)
Quarter: 2024Q3

REPORT INFORMATION
  Report Type: Spontaneous
  Country: US (occurrence: None)
  Receive Date: 20240703
  Receipt Date: 20240703
  Transmission Date: 20241016
  Serious: Yes (Hospitalization)
  Sender: Public
  Company Number: None

PATIENT
  Age: 54 Year
  Sex: Male

DRUGS (5)
  1. OPSUMIT [Suspect]
     Active Substance: MACITENTAN
  2. SILDENAFIL [Suspect]
     Active Substance: SILDENAFIL
  3. TREPROSTINIL [Suspect]
     Active Substance: TREPROSTINIL
  4. AMIODARONE [Suspect]
     Active Substance: AMIODARONE
  5. WARFARIN [Suspect]
     Active Substance: WARFARIN

REACTIONS (2)
  - Hypotension [None]
  - Lung opacity [None]

NARRATIVE: CASE EVENT DATE: 20240623
